FAERS Safety Report 8573616-9 (Version None)
Quarter: 2012Q2

REPORT INFORMATION
  Report Type: 
  Country: None (occurrence: None)
  Receive Date: 20120423
  Receipt Date: 20100730
  Transmission Date: 20120825
  Serious: Yes (Hospitalization)
  Sender: FDA-Public Use
  Company Number: PHEH2009US17207

PATIENT
  Sex: Female
  Weight: 75.7 kg

DRUGS (18)
  1. BIDIL [Concomitant]
  2. FLEXERIL [Concomitant]
  3. PLAVIX [Concomitant]
  4. COREG [Concomitant]
  5. SLOW-MAG (MAGNESIUM CHLORIDE ANHYDROUS) [Concomitant]
  6. DEMEROL [Concomitant]
  7. TRENTAL [Concomitant]
  8. FOLIC ACID [Concomitant]
  9. SYNTHROID [Concomitant]
  10. EXJADE [Suspect]
     Indication: SICKLE CELL ANAEMIA
     Dosage: 1000 MG, DAILY : 1500 MG DAILY : 2000 MG : 2000 MG, QD, ORAL
     Route: 048
     Dates: start: 20080514
  11. EXJADE [Suspect]
     Indication: SICKLE CELL ANAEMIA WITH CRISIS
     Dosage: 1000 MG, DAILY : 1500 MG DAILY : 2000 MG : 2000 MG, QD, ORAL
     Route: 048
     Dates: start: 20080514
  12. EXJADE [Suspect]
     Indication: IRON OVERLOAD
     Dosage: 1000 MG, DAILY : 1500 MG DAILY : 2000 MG : 2000 MG, QD, ORAL
     Route: 048
     Dates: start: 20080514
  13. EXJADE [Suspect]
     Indication: SICKLE CELL ANAEMIA
     Dosage: 1000 MG, DAILY : 1500 MG DAILY : 2000 MG : 2000 MG, QD, ORAL
     Route: 048
     Dates: start: 20070101
  14. EXJADE [Suspect]
     Indication: SICKLE CELL ANAEMIA WITH CRISIS
     Dosage: 1000 MG, DAILY : 1500 MG DAILY : 2000 MG : 2000 MG, QD, ORAL
     Route: 048
     Dates: start: 20070101
  15. EXJADE [Suspect]
     Indication: IRON OVERLOAD
     Dosage: 1000 MG, DAILY : 1500 MG DAILY : 2000 MG : 2000 MG, QD, ORAL
     Route: 048
     Dates: start: 20070101
  16. EXJADE [Suspect]
     Indication: SICKLE CELL ANAEMIA
     Dosage: 1000 MG, DAILY : 1500 MG DAILY : 2000 MG : 2000 MG, QD, ORAL
     Route: 048
     Dates: start: 20080201
  17. EXJADE [Suspect]
     Indication: SICKLE CELL ANAEMIA WITH CRISIS
     Dosage: 1000 MG, DAILY : 1500 MG DAILY : 2000 MG : 2000 MG, QD, ORAL
     Route: 048
     Dates: start: 20080201
  18. EXJADE [Suspect]
     Indication: IRON OVERLOAD
     Dosage: 1000 MG, DAILY : 1500 MG DAILY : 2000 MG : 2000 MG, QD, ORAL
     Route: 048
     Dates: start: 20080201

REACTIONS (1)
  - SICKLE CELL ANAEMIA WITH CRISIS [None]
